APPROVED DRUG PRODUCT: METHOXSALEN
Active Ingredient: METHOXSALEN
Strength: 10MG
Dosage Form/Route: CAPSULE;ORAL
Application: A087781 | Product #001
Applicant: ANI PHARMACEUTICALS INC
Approved: Jun 8, 1982 | RLD: No | RS: No | Type: DISCN